FAERS Safety Report 6172400-3 (Version None)
Quarter: 2009Q2

REPORT INFORMATION
  Report Type: 
  Country: None (occurrence: None)
  Receive Date: 20090429
  Receipt Date: 20090422
  Transmission Date: 20091009
  Serious: Yes (Hospitalization, Other)
  Sender: FDA-Public Use
  Company Number: PHHY2009BR15494

PATIENT
  Sex: Male

DRUGS (2)
  1. DIOVAN [Suspect]
     Dosage: UNK
     Dates: start: 20050101
  2. FORASEQ [Suspect]
     Dosage: UNK
     Dates: start: 20050101

REACTIONS (4)
  - BLADDER OPERATION [None]
  - CYSTOSCOPY [None]
  - EYE OPERATION [None]
  - TRANSURETHRAL PROSTATECTOMY [None]
